FAERS Safety Report 13949855 (Version 3)
Quarter: 2017Q3

REPORT INFORMATION
  Report Type: Report from Study
  Country: CA (occurrence: CA)
  Receive Date: 20170908
  Receipt Date: 20170920
  Transmission Date: 20171128
  Serious: Yes (Other)
  Sender: FDA-Public Use
  Company Number: PHHY2017CA131965

PATIENT

DRUGS (1)
  1. PKC412 [Suspect]
     Active Substance: MIDOSTAURIN
     Indication: ACUTE MYELOID LEUKAEMIA
     Dosage: UNK
     Route: 048
     Dates: start: 20170828

REACTIONS (7)
  - Neutropenia [Not Recovered/Not Resolved]
  - Anaemia [Not Recovered/Not Resolved]
  - Febrile neutropenia [Recovered/Resolved]
  - Nausea [Not Recovered/Not Resolved]
  - Thrombocytopenia [Recovering/Resolving]
  - Thrombocytopenia [Recovered/Resolved]
  - Flatulence [Not Recovered/Not Resolved]

NARRATIVE: CASE EVENT DATE: 20170828
